FAERS Safety Report 22129835 (Version 1)
Quarter: 2023Q1

REPORT INFORMATION
  Report Type: Spontaneous
  Country: US (occurrence: None)
  Receive Date: 20230322
  Receipt Date: 20230322
  Transmission Date: 20230418
  Serious: Yes (Life-Threatening)
  Sender: FDA-Public Use
  Company Number: None

PATIENT
  Age: 48 Year
  Sex: Female
  Weight: 68.4 kg

DRUGS (12)
  1. AJOVY [Suspect]
     Active Substance: FREMANEZUMAB-VFRM
     Indication: Migraine
     Dosage: OTHER QUANTITY : 1 INJECTION(S);?OTHER FREQUENCY : 1X PER MONTH;?
     Route: 058
  2. LYRICA [Concomitant]
     Active Substance: PREGABALIN
  3. LAMOTRIGINE [Concomitant]
     Active Substance: LAMOTRIGINE
  4. PRIMIDONE [Concomitant]
     Active Substance: PRIMIDONE
  5. LISINOPRIL [Concomitant]
     Active Substance: LISINOPRIL
  6. ZOFRAN [Concomitant]
     Active Substance: ONDANSETRON HYDROCHLORIDE
  7. IMITREX [Concomitant]
     Active Substance: SUMATRIPTAN SUCCINATE
  8. TRAMADOL [Concomitant]
     Active Substance: TRAMADOL
  9. XANAX [Concomitant]
     Active Substance: ALPRAZOLAM
  10. NALU peripheral nerve stimulator [Concomitant]
  11. Tylenol occasionally [Concomitant]
  12. Centrum multivitamins for women [Concomitant]

REACTIONS (26)
  - Crying [None]
  - Anxiety [None]
  - Paralysis [None]
  - Fatigue [None]
  - Somnolence [None]
  - Skin disorder [None]
  - Muscle tightness [None]
  - Chest discomfort [None]
  - Blood pressure increased [None]
  - Sexual dysfunction [None]
  - Vulvovaginal dryness [None]
  - Hot flush [None]
  - Atrophic vulvovaginitis [None]
  - Anorgasmia [None]
  - Fungal infection [None]
  - Dyspareunia [None]
  - Urinary tract infection [None]
  - Tremor [None]
  - Loss of consciousness [None]
  - Balance disorder [None]
  - Weight increased [None]
  - Palpitations [None]
  - Heart rate increased [None]
  - Chest pain [None]
  - Migraine [None]
  - Therapy non-responder [None]

NARRATIVE: CASE EVENT DATE: 20230313
